FAERS Safety Report 4720481-3 (Version None)
Quarter: 2005Q3

REPORT INFORMATION
  Report Type: 
  Country: None (occurrence: None)
  Receive Date: 20050721
  Receipt Date: 20040824
  Transmission Date: 20060218
  Serious: No
  Sender: FDA-Public Use
  Company Number: US-BRISTOL-MYERS SQUIBB COMPANY-12683033

PATIENT
  Age: 68 Year
  Sex: Female
  Weight: 67 kg

DRUGS (11)
  1. GLUCOVANCE [Suspect]
     Indication: DIABETES MELLITUS
     Route: 048
  2. ACTOS [Concomitant]
  3. SYNTHROID [Concomitant]
  4. NADOLOL [Concomitant]
  5. NORVASC [Concomitant]
  6. BENICAR [Concomitant]
  7. ACCUPRIL [Concomitant]
  8. ASPIRIN [Concomitant]
  9. ZETIA [Concomitant]
  10. TRICOR [Concomitant]
  11. NPH INSULIN [Concomitant]
     Dosage: 20 UNITS AT NIGHT

REACTIONS (2)
  - DIARRHOEA [None]
  - DIVERTICULITIS [None]
